FAERS Safety Report 7368220-4 (Version None)
Quarter: 2011Q1

REPORT INFORMATION
  Report Type: 
  Country: None (occurrence: None)
  Receive Date: 20110323
  Receipt Date: 20110321
  Transmission Date: 20110831
  Serious: No
  Sender: FDA-Public Use
  Company Number: US-PFIZER INC-2011062637

PATIENT
  Sex: Female

DRUGS (1)
  1. CHANTIX [Suspect]
     Dosage: UNK

REACTIONS (6)
  - FATIGUE [None]
  - ASTHENIA [None]
  - VOMITING [None]
  - NAUSEA [None]
  - MIDDLE INSOMNIA [None]
  - INFLUENZA LIKE ILLNESS [None]
